FAERS Safety Report 5409211-X (Version None)
Quarter: 2007Q3

REPORT INFORMATION
  Report Type: 
  Country: None (occurrence: None)
  Receive Date: 20070807
  Receipt Date: 20070807
  Transmission Date: 20080115
  Serious: Yes (Hospitalization)
  Sender: FDA-Public Use
  Company Number: None

PATIENT
  Sex: Female
  Weight: 69.31 kg

DRUGS (16)
  1. CARBOPLATIN [Suspect]
     Indication: BREAST CANCER
     Dosage: 2 AUC WEEKLY IV
     Route: 042
     Dates: start: 20070724
  2. CETUXIMAB [Suspect]
     Indication: BREAST CANCER
     Dosage: 400MG/M2 WEEKLY IV
     Route: 042
     Dates: start: 20070724
  3. VANCOMYCIN [Concomitant]
  4. CEFEPIME [Concomitant]
  5. DOBUTAMINE HCL [Concomitant]
  6. NOREPINEPHRINE [Concomitant]
  7. CIPROFLOXACIN [Concomitant]
  8. LANSOPRAZOLE [Concomitant]
  9. METRONIDAZOLE [Concomitant]
  10. THERAPEUTIC THORACENTESIS [Concomitant]
  11. EMEND [Concomitant]
  12. CELEXA [Concomitant]
  13. HYDROCODONE BITARTRATE [Concomitant]
  14. HYDROCHLOROTHIAZIDE [Concomitant]
  15. TESSALON [Concomitant]
  16. NEXIUM [Concomitant]

REACTIONS (13)
  - ANOREXIA [None]
  - ASTHENIA [None]
  - CONFUSIONAL STATE [None]
  - DEHYDRATION [None]
  - FATIGUE [None]
  - HYPOTENSION [None]
  - MALIGNANT PLEURAL EFFUSION [None]
  - METASTASES TO LIVER [None]
  - NAUSEA [None]
  - SEPSIS [None]
  - SOMNOLENCE [None]
  - TACHYCARDIA [None]
  - VOMITING [None]
